FAERS Safety Report 4297001-3 (Version None)
Quarter: 2004Q1

REPORT INFORMATION
  Report Type: 
  Country: None (occurrence: None)
  Receive Date: 20040217
  Receipt Date: 20040209
  Transmission Date: 20041129
  Serious: Yes (Hospitalization)
  Sender: FDA-Public Use
  Company Number: PHNU2004DE00841

PATIENT
  Sex: Male

DRUGS (4)
  1. SANDIMMUNE [Suspect]
     Indication: NEPHROTIC SYNDROME
     Dosage: 3 MG/KG, QD
     Dates: start: 20040101
  2. ACE INHIBITOR NOS [Concomitant]
  3. BETA BLOCKING AGENTS [Concomitant]
  4. CHOLESTEROL- AND TRIGLYCERIDE REDUCERS (STATIN) [Concomitant]

REACTIONS (5)
  - BLOOD PRESSURE INCREASED [None]
  - HYPERTENSIVE ENCEPHALOPATHY [None]
  - OEDEMA PERIPHERAL [None]
  - PERSONALITY CHANGE [None]
  - VIRAL INFECTION [None]
